FAERS Safety Report 10501431 (Version 2)
Quarter: 2014Q4

REPORT INFORMATION
  Report Type: Spontaneous
  Country: JP (occurrence: JP)
  Receive Date: 20141007
  Receipt Date: 20141103
  Transmission Date: 20150528
  Serious: Yes (Other)
  Sender: FDA-Public Use
  Company Number: JP-MYLANLABS-2014M1005792

PATIENT

DRUGS (2)
  1. PREDNISOLONE TABLETS 5 ^HOEI^ [Suspect]
     Active Substance: PREDNISOLONE
     Indication: STILL^S DISEASE ADULT ONSET
     Dosage: 5-10MG/DAY UNK, UNK
     Route: 048
  2. RISEDRONATE SODIUM. [Suspect]
     Active Substance: RISEDRONATE SODIUM
     Indication: STILL^S DISEASE ADULT ONSET
     Dosage: 2.5 MG, UNK
     Route: 048

REACTIONS (2)
  - White blood cell count increased [Unknown]
  - Atypical femur fracture [Unknown]
